FAERS Safety Report 10436983 (Version 1)
Quarter: 2014Q3

REPORT INFORMATION
  Report Type: Spontaneous
  Country: US (occurrence: US)
  Receive Date: 20140908
  Receipt Date: 20140908
  Transmission Date: 20150326
  Serious: No
  Sender: FDA-Public Use
  Company Number: US-BRISTOL-MYERS SQUIBB COMPANY-20815445

PATIENT
  Age: 48 Year
  Sex: Male

DRUGS (1)
  1. ABILIFY [Suspect]
     Active Substance: ARIPIPRAZOLE
     Indication: SCHIZOPHRENIA
     Route: 065
     Dates: start: 2003, end: 20140516

REACTIONS (3)
  - Dyspnoea [Recovering/Resolving]
  - Nasal polyps [Not Recovered/Not Resolved]
  - Dystonia [Unknown]

NARRATIVE: CASE EVENT DATE: 2014
